FAERS Safety Report 21304126 (Version 1)
Quarter: 2022Q3

REPORT INFORMATION
  Report Type: Spontaneous
  Country: US (occurrence: US)
  Receive Date: 20220907
  Receipt Date: 20220907
  Transmission Date: 20221027
  Serious: No
  Sender: FDA-Public Use
  Company Number: US-PERRIGO-21US029622

PATIENT
  Age: 47 Year
  Sex: Female
  Weight: 54.422 kg

DRUGS (7)
  1. MINOXIDIL [Suspect]
     Active Substance: MINOXIDIL
     Indication: Alopecia
     Dosage: UNK, TWICE
     Route: 061
     Dates: start: 20211013, end: 20211013
  2. CLONAZEPAM [Concomitant]
     Active Substance: CLONAZEPAM
     Indication: Post-traumatic stress disorder
     Dosage: UNK
     Route: 065
  3. LORTAB [Concomitant]
     Active Substance: ACETAMINOPHEN\HYDROCODONE BITARTRATE
     Indication: Injury
     Dosage: 5 MG
     Route: 065
  4. GABAPENTIN [Concomitant]
     Active Substance: GABAPENTIN
     Indication: Nerve injury
     Dosage: UNK
     Route: 065
  5. GABAPENTIN [Concomitant]
     Active Substance: GABAPENTIN
     Indication: Neuralgia
  6. IBUPROFEN [Concomitant]
     Active Substance: IBUPROFEN
     Indication: Pain
     Dosage: UNK
     Route: 065
  7. IBUPROFEN [Concomitant]
     Active Substance: IBUPROFEN
     Indication: Arthritis

REACTIONS (16)
  - Malaise [Recovering/Resolving]
  - Asthenia [Recovering/Resolving]
  - Angina pectoris [Recovered/Resolved]
  - Heart sounds abnormal [Recovered/Resolved]
  - Pallor [Recovered/Resolved]
  - Vomiting [Recovered/Resolved]
  - Loss of consciousness [Recovered/Resolved]
  - Tremor [Recovered/Resolved]
  - Nervousness [Recovered/Resolved]
  - Anxiety [Recovered/Resolved]
  - Hypersomnia [Recovered/Resolved]
  - Nausea [Recovering/Resolving]
  - Palpitations [None]
  - Chest pain [Recovered/Resolved]
  - Dizziness [Recovering/Resolving]
  - Underdose [Recovered/Resolved]

NARRATIVE: CASE EVENT DATE: 20211013
